FAERS Safety Report 8803028 (Version 1)
Quarter: 2012Q4

REPORT INFORMATION
  Report Type: 
  Country: US (occurrence: US)
  Receive Date: 20120924
  Receipt Date: 20120924
  Transmission Date: 20130627
  Serious: Yes (Death, Hospitalization)
  Sender: FDA-Public Use
  Company Number: US-COVIDIEN/TYCO HEALTHCARE/MALLINCKRODT-T201203436

PATIENT
  Age: 28 Year
  Sex: Male

DRUGS (4)
  1. HYDROMORPHONE [Suspect]
     Indication: PAIN
     Dosage: UNK
  2. BENZODIAZEPINE DERIVATIVES [Suspect]
     Indication: ANXIETY
     Dosage: UNK
  3. TUMOR NECROSIS FACTOR ALPHA (TNF-ALPHA) INHIB [Concomitant]
     Dosage: UNK
  4. ANTIBIOTICS [Concomitant]
     Indication: GASTROENTERITIS BACTERIAL
     Dosage: UNK
     Route: 042

REACTIONS (3)
  - Intentional drug misuse [Fatal]
  - Incorrect route of drug administration [Fatal]
  - Pulmonary embolism [Fatal]
